FAERS Safety Report 8161417 (Version 3)
Quarter: 2013Q4

REPORT INFORMATION
  Report Type: Report from Study
  Country: MW (occurrence: MW)
  Receive Date: 20110929
  Receipt Date: 20131127
  Transmission Date: 20140711
  Serious: Yes (Life-Threatening, Other)
  Sender: FDA-Public Use
  Company Number: MW-BRISTOL-MYERS SQUIBB COMPANY-16091480

PATIENT
  Age: 31 Year
  Sex: Male
  Weight: 59.5 kg

DRUGS (3)
  1. STAVUDINE [Suspect]
     Indication: HIV INFECTION
     Dosage: LAST DOSE:19SEP11
     Route: 048
     Dates: start: 20110830
  2. EFAVIRENZ [Suspect]
     Indication: HIV INFECTION
     Dosage: LAST DOSE:19SEP11
     Route: 048
     Dates: start: 20110621
  3. LAMIVUDINE [Suspect]
     Indication: HIV INFECTION
     Dosage: LAST DOSE:19SEP11
     Route: 048
     Dates: start: 20110621

REACTIONS (1)
  - Neutrophil count decreased [Recovered/Resolved]
